FAERS Safety Report 4836967-7 (Version None)
Quarter: 2005Q4

REPORT INFORMATION
  Report Type: 
  Country: None (occurrence: None)
  Receive Date: 20051123
  Receipt Date: 20051108
  Transmission Date: 20060501
  Serious: Yes (Hospitalization)
  Sender: FDA-Public Use
  Company Number: US-MERCK-0511USA01257

PATIENT
  Age: 69 Year
  Sex: Male
  Weight: 91 kg

DRUGS (7)
  1. VIOXX [Suspect]
     Route: 048
     Dates: start: 20010305, end: 20020525
  2. ALTACE [Concomitant]
     Route: 065
  3. TRIAM-A [Concomitant]
     Route: 065
  4. GLUCOPHAGE [Concomitant]
     Route: 065
  5. QUININE SULFATE [Concomitant]
     Route: 065
  6. ACTOS [Concomitant]
     Route: 065
  7. PYRIDOXINE [Concomitant]
     Route: 065

REACTIONS (11)
  - ANGINA PECTORIS [None]
  - ARTHROPATHY [None]
  - BLOOD CREATINE INCREASED [None]
  - CHEST PAIN [None]
  - CORONARY ARTERY DISEASE [None]
  - CORONARY ARTERY RESTENOSIS [None]
  - DIABETES MELLITUS [None]
  - DYSLIPIDAEMIA [None]
  - HYPERTENSION [None]
  - LIPOMA [None]
  - MYOCARDIAL INFARCTION [None]
